FAERS Safety Report 23922572 (Version 1)
Quarter: 2024Q2

REPORT INFORMATION
  Report Type: Spontaneous
  Country: TR (occurrence: TR)
  Receive Date: 20240531
  Receipt Date: 20240531
  Transmission Date: 20240716
  Serious: Yes (Hospitalization)
  Sender: FDA-Public Use
  Company Number: TR-Axellia-005191

PATIENT
  Age: 61 Year
  Sex: Female

DRUGS (3)
  1. TIGECYCLINE [Suspect]
     Active Substance: TIGECYCLINE
     Indication: Pyrexia
     Dosage: LOADING DOSE 100 MG, FOLLOWED BY ?50 MG EVERY 12 H
     Route: 042
  2. DAPTOMYCIN [Concomitant]
     Active Substance: DAPTOMYCIN
     Indication: Pyrexia
     Dosage: (1 X 6 MG/KG)
  3. ANIDULAFUNGIN [Concomitant]
     Active Substance: ANIDULAFUNGIN
     Indication: Pyrexia
     Dosage: LOADING DOSE 200 MG, FOLLOWED BY 100 MG EVERY 12 H
     Route: 042

REACTIONS (1)
  - Hepatic steatosis [Recovering/Resolving]
